FAERS Safety Report 9095548 (Version 1)
Quarter: 2013Q1

REPORT INFORMATION
  Report Type: Spontaneous
  Country: IT (occurrence: IT)
  Receive Date: 20130219
  Receipt Date: 20130219
  Transmission Date: 20140127
  Serious: Yes (Hospitalization)
  Sender: FDA-Public Use
  Company Number: PHHY2013IT015458

PATIENT
  Sex: Female

DRUGS (9)
  1. QUETIAPINE [Suspect]
     Dosage: 1 DF, QD
     Route: 048
     Dates: start: 20130103, end: 20130109
  2. FRUSEMIDE MYLAN [Concomitant]
  3. ZANEDIP [Concomitant]
  4. ZYLORIC [Concomitant]
  5. TAVOR (LORAZEPAM) [Concomitant]
     Dosage: UNK UKN, UNK
  6. METFORAL [Concomitant]
  7. TICLOPIDINA [Concomitant]
  8. EUTIROX [Concomitant]
     Dosage: UNK UKN, UNK
  9. ENALAPRIL ACTAVIS [Concomitant]

REACTIONS (4)
  - Glossodynia [Recovering/Resolving]
  - Malaise [Recovering/Resolving]
  - Dry mouth [Recovering/Resolving]
  - Hyponatraemia [Recovering/Resolving]
